FAERS Safety Report 4792852-0 (Version None)
Quarter: 2005Q4

REPORT INFORMATION
  Report Type: 
  Country: None (occurrence: None)
  Receive Date: 20051010
  Receipt Date: 20050929
  Transmission Date: 20060501
  Serious: Yes (Hospitalization)
  Sender: FDA-Public Use
  Company Number: 200517003US

PATIENT
  Age: 39 Year
  Sex: Male

DRUGS (12)
  1. LANTUS [Suspect]
     Indication: DIABETES MELLITUS NON-INSULIN-DEPENDENT
     Dosage: DOSE UNIT: UNITS
     Route: 058
     Dates: start: 20050101
  2. ZOLOFT [Suspect]
     Dosage: DOSE: NOT PROVIDED
  3. RISPERDAL [Suspect]
     Dosage: DOSE: NOT PROVIDED
  4. BACLOFEN [Concomitant]
     Dosage: DOSE: NOT PROVIDED
  5. DIFLUCAN [Concomitant]
     Dosage: DOSE: NOT PROVIDED
  6. MVI                                     /USA/ [Concomitant]
     Dosage: DOSE: NOT PROVIDED
  7. ZINC [Concomitant]
     Dosage: DOSE: NOT PROVIDED
  8. OMEPRAZOLE [Concomitant]
     Dosage: DOSE: NOT PROVIDED
  9. ASCORBIC ACID [Concomitant]
     Dosage: DOSE: NOT PROVIDED
  10. LASIX [Concomitant]
     Dosage: DOSE: NOT PROVIDED
  11. VANCOMYCIN [Concomitant]
     Dosage: DOSE: UNKNOWN
  12. MAXAQUIN [Concomitant]
     Dosage: DOSE: NOT PROVIDED

REACTIONS (4)
  - BLOOD GLUCOSE INCREASED [None]
  - PARANOIA [None]
  - SEPSIS [None]
  - SOMNOLENCE [None]
